FAERS Safety Report 7945265-4 (Version None)
Quarter: 2011Q4

REPORT INFORMATION
  Report Type: 
  Country: None (occurrence: None)
  Receive Date: 20111129
  Receipt Date: 20101013
  Transmission Date: 20120403
  Serious: Yes (Other)
  Sender: FDA-Public Use
  Company Number: US-GLAXOSMITHKLINE-A0886415A

PATIENT
  Age: 80 Year
  Sex: Female

DRUGS (14)
  1. NEXIUM [Concomitant]
  2. COSOPT [Concomitant]
  3. ASPIRIN [Concomitant]
  4. ATACAND [Concomitant]
  5. GLUCOPHAGE [Concomitant]
  6. ADVAIR DISKUS 100/50 [Concomitant]
  7. WELLBUTRIN SR [Suspect]
     Indication: PRODUCT USED FOR UNKNOWN INDICATION
     Dosage: 150MG TWICE PER DAY
     Route: 048
  8. FLONASE [Concomitant]
  9. MULTI-VITAMIN [Concomitant]
  10. ACETAMINOPHEN [Concomitant]
  11. SINGULAIR [Concomitant]
  12. SURGERY [Concomitant]
  13. TRAVATAN [Concomitant]
  14. VITAMIN B12 SHOT [Concomitant]

REACTIONS (4)
  - GAIT DISTURBANCE [None]
  - HALLUCINATION, AUDITORY [None]
  - NIGHTMARE [None]
  - VISUAL IMPAIRMENT [None]
